FAERS Safety Report 6347481-4 (Version None)
Quarter: 2009Q3

REPORT INFORMATION
  Report Type: 
  Country: None (occurrence: None)
  Receive Date: 20090910
  Receipt Date: 20090902
  Transmission Date: 20100115
  Serious: Yes (Hospitalization, Disabling, Other)
  Sender: FDA-Public Use
  Company Number: BR-ELI_LILLY_AND_COMPANY-BR200907007059

PATIENT
  Sex: Male
  Weight: 55 kg

DRUGS (1)
  1. HUMALOG [Suspect]
     Indication: TYPE 2 DIABETES MELLITUS
     Dosage: UNK, UNKNOWN
     Route: 065
     Dates: start: 20060101

REACTIONS (7)
  - BLOOD GLUCOSE INCREASED [None]
  - DYSARTHRIA [None]
  - FALL [None]
  - FEMUR FRACTURE [None]
  - HYDROCEPHALUS [None]
  - HYPOGLYCAEMIA [None]
  - WALKING AID USER [None]
